FAERS Safety Report 9376347 (Version 1)
Quarter: 2013Q3

REPORT INFORMATION
  Report Type: Spontaneous
  Country: US (occurrence: US)
  Receive Date: 20130701
  Receipt Date: 20130701
  Transmission Date: 20140515
  Serious: Yes (Hospitalization, Other)
  Sender: FDA-Public Use
  Company Number: US-ROCHE-1242008

PATIENT
  Age: 22 Year
  Sex: Male
  Weight: 90.8 kg

DRUGS (1)
  1. ACCUTANE [Suspect]
     Indication: ACNE
     Route: 065
     Dates: start: 200707

REACTIONS (5)
  - Crohn^s disease [Unknown]
  - Anal fistula [Unknown]
  - Inflammatory bowel disease [Unknown]
  - Depression [Unknown]
  - Colitis [Unknown]
